FAERS Safety Report 6107894-2 (Version None)
Quarter: 2009Q1

REPORT INFORMATION
  Report Type: 
  Country: None (occurrence: None)
  Receive Date: 20090309
  Receipt Date: 20090304
  Transmission Date: 20090719
  Serious: Yes (Hospitalization, Disabling)
  Sender: FDA-Public Use
  Company Number: US-MERCK-0805USA00912

PATIENT
  Age: 62 Year
  Sex: Male
  Weight: 53 kg

DRUGS (6)
  1. FOSAMAX [Suspect]
     Indication: OSTEOPOROSIS PROPHYLAXIS
     Route: 048
     Dates: start: 20030701, end: 20060601
  2. FOSAMAX [Suspect]
     Route: 048
     Dates: start: 19970101
  3. FOSAMAX [Suspect]
     Route: 048
     Dates: start: 20010426, end: 20030601
  4. FOSAMAX [Suspect]
     Indication: OSTEOPENIA
     Route: 048
     Dates: start: 20030701, end: 20060601
  5. FOSAMAX [Suspect]
     Route: 048
     Dates: start: 19970101
  6. FOSAMAX [Suspect]
     Route: 048
     Dates: start: 20010426, end: 20030601

REACTIONS (31)
  - ARCUS LIPOIDES [None]
  - ARTHROPOD BITE [None]
  - BACK INJURY [None]
  - BENIGN PROSTATIC HYPERPLASIA [None]
  - BODY MASS INDEX DECREASED [None]
  - CATARACT [None]
  - DENTAL CARIES [None]
  - GASTROOESOPHAGEAL REFLUX DISEASE [None]
  - GINGIVAL DISORDER [None]
  - HAEMATURIA [None]
  - HAEMORRHOIDS [None]
  - HYPOGLYCAEMIA [None]
  - HYPOTHYROIDISM [None]
  - INGUINAL HERNIA [None]
  - INSOMNIA [None]
  - MASTICATION DISORDER [None]
  - NASAL POLYPS [None]
  - NASAL SEPTUM DEVIATION [None]
  - ORAL INFECTION [None]
  - ORAL PAIN [None]
  - ORAL TORUS [None]
  - OSTEOARTHRITIS [None]
  - OSTEONECROSIS [None]
  - POSTOPERATIVE WOUND INFECTION [None]
  - RASH PUSTULAR [None]
  - RESORPTION BONE INCREASED [None]
  - RHINITIS ALLERGIC [None]
  - SCOLIOSIS [None]
  - SEXUAL DYSFUNCTION [None]
  - SLEEP APNOEA SYNDROME [None]
  - TOOTH LOSS [None]
